FAERS Safety Report 16535866 (Version 1)
Quarter: 2019Q3

REPORT INFORMATION
  Report Type: Spontaneous
  Country: IT (occurrence: IT)
  Receive Date: 20190705
  Receipt Date: 20190705
  Transmission Date: 20191004
  Serious: Yes (Other)
  Sender: FDA-Public Use
  Company Number: PHHY2019IT151407

PATIENT
  Age: 43 Year
  Sex: Male

DRUGS (2)
  1. TAVOR (LORAZEPAM) [Suspect]
     Active Substance: LORAZEPAM
     Indication: DEPRESSION
     Dosage: 2 DF, TOTAL
     Route: 048
     Dates: start: 20190608
  2. QUETIAPINE. [Suspect]
     Active Substance: QUETIAPINE
     Indication: DEPRESSION
     Dosage: 125 MG, TOTAL
     Route: 048
     Dates: start: 20190608

REACTIONS (3)
  - Nausea [Recovering/Resolving]
  - Overdose [Recovering/Resolving]
  - Headache [Recovering/Resolving]

NARRATIVE: CASE EVENT DATE: 20190608
